FAERS Safety Report 6828065-8 (Version None)
Quarter: 2010Q3

REPORT INFORMATION
  Report Type: 
  Country: None (occurrence: None)
  Receive Date: 20100709
  Receipt Date: 20100701
  Transmission Date: 20110219
  Serious: Yes (Other)
  Sender: FDA-Public Use
  Company Number: B0664402A

PATIENT
  Sex: Female

DRUGS (1)
  1. AUGMENTIN '125' [Suspect]
     Indication: PRODUCT USED FOR UNKNOWN INDICATION
     Dosage: 2G PER DAY
     Route: 048
     Dates: start: 20100124, end: 20100124

REACTIONS (5)
  - ABDOMINAL PAIN [None]
  - AGITATION [None]
  - DERMATOSIS [None]
  - PRURITUS [None]
  - VOMITING [None]
